FAERS Safety Report 9379806 (Version 1)
Quarter: 2013Q3

REPORT INFORMATION
  Report Type: Spontaneous
  Country: US (occurrence: None)
  Receive Date: 20130701
  Receipt Date: 20130701
  Transmission Date: 20140515
  Serious: Yes (Other)
  Sender: FDA-Public Use
  Company Number: None

PATIENT
  Age: 52 Year
  Sex: Female

DRUGS (1)
  1. STIVARGA 40 MG BAYER [Suspect]
     Indication: COLON CANCER
     Dosage: 160 MG QD PO
     Route: 048
     Dates: start: 20130618

REACTIONS (4)
  - Headache [None]
  - Stomatitis [None]
  - Visual impairment [None]
  - Nausea [None]
